FAERS Safety Report 18623710 (Version 2)
Quarter: 2020Q4

REPORT INFORMATION
  Report Type: Spontaneous
  Country: CZ (occurrence: CZ)
  Receive Date: 20201216
  Receipt Date: 20201224
  Transmission Date: 20210114
  Serious: Yes (Hospitalization, Other)
  Sender: FDA-Public Use
  Company Number: CZ-BRISTOL-MYERS SQUIBB COMPANY-BMS-2020-104283

PATIENT
  Sex: Female

DRUGS (23)
  1. NOVALGIN (METAMIZOLE SODIUM) [Suspect]
     Active Substance: METAMIZOLE SODIUM
     Indication: HYPERTENSION
     Dosage: 500 MILLIGRAM, BID
     Route: 065
  2. EUTHYROX [Suspect]
     Active Substance: LEVOTHYROXINE SODIUM
     Indication: HYPOTHYROIDISM
     Dosage: 100 MICROGRAM, QD
     Route: 065
  3. PREGABALIN. [Concomitant]
     Active Substance: PREGABALIN
     Indication: POST HERPETIC NEURALGIA
     Dosage: UNK
     Route: 065
  4. ROSUCARD [Suspect]
     Active Substance: ROSUVASTATIN CALCIUM
     Indication: PRODUCT USED FOR UNKNOWN INDICATION
     Dosage: 20 MILLIGRAM, QD
     Route: 048
  5. DUROGESIC [Suspect]
     Active Substance: FENTANYL
     Indication: PAIN
     Dosage: 25 UG/H EVERY 72 HOURS
     Route: 062
     Dates: start: 2015
  6. METHOTREXATE. [Suspect]
     Active Substance: METHOTREXATE
     Indication: RHEUMATOID ARTHRITIS
     Dosage: 10 MILLIGRAM, QD (SUNDAY)
     Route: 048
  7. AGEN [Suspect]
     Active Substance: AMLODIPINE BESYLATE
     Indication: HYPERTENSION
     Dosage: 5 MILLIGRAM, QD
     Route: 048
  8. CARDILAN [MAGNESIUM ASPARTATE;POTASSIUM ASPARTATE] [Suspect]
     Active Substance: MAGNESIUM ASPARTATE\POTASSIUM ASPARTATE
     Indication: ENCEPHALOPATHY
     Dosage: UNK UNK, QD
     Route: 048
  9. CONTROLOC [Suspect]
     Active Substance: PANTOPRAZOLE SODIUM
     Indication: NAUSEA
     Dosage: 20 MILLIGRAM, QD
     Route: 048
  10. TENSIOMIN [Suspect]
     Active Substance: CAPTOPRIL
     Indication: BLOOD PRESSURE INCREASED
     Dosage: UNK
     Route: 065
  11. CORDARONE [Suspect]
     Active Substance: AMIODARONE HYDROCHLORIDE
     Indication: ATRIAL FIBRILLATION
     Dosage: 200 MILLIGRAM, QD
     Route: 048
  12. PREDNISONE. [Suspect]
     Active Substance: PREDNISONE
     Indication: STEROID THERAPY
     Dosage: 5 MILLIGRAM, QD
     Route: 048
  13. BETALOC ZOK [Suspect]
     Active Substance: METOPROLOL SUCCINATE
     Indication: HYPERTENSION
     Dosage: 25 MILLIGRAM, QD
     Route: 048
  14. FOLIC ACID. [Suspect]
     Active Substance: FOLIC ACID
     Indication: PRODUCT USED FOR UNKNOWN INDICATION
     Dosage: UNK UNK, QD
  15. MELOXICAM. [Suspect]
     Active Substance: MELOXICAM
     Indication: PAIN
     Dosage: 15 MILLIGRAM
     Route: 065
  16. ELIQUIS [Suspect]
     Active Substance: APIXABAN
     Indication: ANTICOAGULANT THERAPY
     Dosage: 5 MILLIGRAM, BID
     Route: 048
  17. CALCICHEW D3 [Suspect]
     Active Substance: CALCIUM\CHOLECALCIFEROL
     Indication: CALCIUM DEFICIENCY
     Dosage: UNK UNK, QD
  18. ORAMELLOX [Suspect]
     Active Substance: MELOXICAM
     Indication: PAIN
     Dosage: 15 MILLIGRAM, QD
     Route: 048
  19. PANADOL [Suspect]
     Active Substance: ACETAMINOPHEN
     Indication: PAIN
     Dosage: 500 MG, 1.5 TAB, 3 TO 4 TIMES A DAY
     Route: 048
  20. GUAJACURAN [Suspect]
     Active Substance: GUAIFENESIN
     Indication: HYPERTENSION
     Dosage: UNK
     Route: 042
  21. TEZEO [Suspect]
     Active Substance: TELMISARTAN
     Indication: HYPERTENSION
     Dosage: 80/12.5 MG , QD
     Route: 048
  22. GUTTALAX [SODIUM PICOSULFATE] [Suspect]
     Active Substance: SODIUM PICOSULFATE
     Indication: CONSTIPATION
     Dosage: 10-20 GTT, EVERY EVENING
     Route: 065
  23. CONDROSULF [Suspect]
     Active Substance: SODIUM CHONDROITIN SULFATE
     Indication: RHEUMATOID ARTHRITIS
     Dosage: 800 MILLIGRAM, QD
     Route: 048

REACTIONS (20)
  - Confusional state [Recovered/Resolved]
  - Head discomfort [Recovered/Resolved]
  - Affect lability [Recovered/Resolved]
  - Vertigo [Recovered/Resolved]
  - Apathy [Recovered/Resolved]
  - Dehydration [Recovered/Resolved]
  - Hypokalaemia [Recovered/Resolved]
  - Anxiety [Recovered/Resolved]
  - Urinary retention [Recovered/Resolved]
  - Cognitive disorder [Recovered/Resolved]
  - Discomfort [Recovered/Resolved]
  - Nausea [Recovered/Resolved]
  - Atrial fibrillation [Recovered/Resolved]
  - Liver function test increased [Recovered/Resolved]
  - Delirium [Recovered/Resolved]
  - Encephalopathy [Recovered/Resolved]
  - Reduced facial expression [Recovered/Resolved]
  - Loss of personal independence in daily activities [Recovered/Resolved]
  - Hyponatraemia [Recovered/Resolved]
  - Mobility decreased [Recovered/Resolved]

NARRATIVE: CASE EVENT DATE: 2019
